FAERS Safety Report 5503855-2 (Version None)
Quarter: 2007Q4

REPORT INFORMATION
  Report Type: 
  Country: None (occurrence: None)
  Receive Date: 20071030
  Receipt Date: 20071018
  Transmission Date: 20080405
  Serious: Yes (Other)
  Sender: FDA-Public Use
  Company Number: 2007333535

PATIENT
  Age: 57 Year
  Weight: 72.5755 kg

DRUGS (2)
  1. LISTERINE WHITENING QUICK DISSOLVING STRIPS (NO ACTIVE INGREDIENT) [Suspect]
     Dosage: 4 STRIPS DAILY, ORAL
     Route: 048
     Dates: start: 20071015, end: 20071017
  2. ATENOLOL [Concomitant]

REACTIONS (1)
  - CHEMICAL BURN OF SKIN [None]
